FAERS Safety Report 5063012-3 (Version None)
Quarter: 2006Q3

REPORT INFORMATION
  Report Type: 
  Country: None (occurrence: None)
  Receive Date: 20060724
  Receipt Date: 20060724
  Transmission Date: 20061208
  Serious: Yes (Other)
  Sender: FDA-Public Use
  Company Number: None

PATIENT
  Age: 48 Year
  Sex: Male
  Weight: 81.6475 kg

DRUGS (1)
  1. EFFEXOR XR [Suspect]
     Indication: DEPRESSION
     Dosage: .75 MG 1X DAY PO
     Route: 048
     Dates: start: 20030101, end: 20060721

REACTIONS (2)
  - AMNESIA [None]
  - FEELING ABNORMAL [None]
